FAERS Safety Report 13065871 (Version 1)
Quarter: 2016Q4

REPORT INFORMATION
  Report Type: Report from Study
  Country: US (occurrence: US)
  Receive Date: 20161227
  Receipt Date: 20161227
  Transmission Date: 20170207
  Serious: Yes (Other)
  Sender: FDA-Public Use
  Company Number: US-009507513-1612USA013348

PATIENT
  Age: 58 Year
  Sex: Male

DRUGS (5)
  1. HEPARIN [Concomitant]
     Active Substance: HEPARIN SODIUM
     Indication: PHLEBITIS DEEP
  2. HUMALOG [Concomitant]
     Active Substance: INSULIN LISPRO
     Dosage: LANTUS AND HUMALOG TOTALING 160 UNITS DAILY
  3. METFORMIN [Suspect]
     Active Substance: METFORMIN HYDROCHLORIDE
     Dosage: UNK UNK, BID
  4. JANUVIA [Suspect]
     Active Substance: SITAGLIPTIN PHOSPHATE
     Dosage: 100 MG ONCE DAILY
     Route: 048
  5. LANTUS [Concomitant]
     Active Substance: INSULIN GLARGINE
     Dosage: LANTUS AND HUMALOG TOTALING 160 UNITS DAILY

REACTIONS (4)
  - Skin exfoliation [Unknown]
  - Oedema peripheral [Unknown]
  - Cellulitis [Unknown]
  - Onychomycosis [Unknown]
